FAERS Safety Report 5588607-X (Version None)
Quarter: 2008Q1

REPORT INFORMATION
  Report Type: 
  Country: None (occurrence: None)
  Receive Date: 20080111
  Receipt Date: 20071231
  Transmission Date: 20080703
  Serious: Yes (Death, Hospitalization)
  Sender: FDA-Public Use
  Company Number: US-PFIZER INC-2006136991

PATIENT
  Sex: Male
  Weight: 64 kg

DRUGS (10)
  1. BLINDED UK-427,857 [Suspect]
     Indication: HIV TEST POSITIVE
     Route: 048
     Dates: start: 20050721, end: 20060523
  2. BLINDED UK-427,857 [Suspect]
     Route: 048
     Dates: start: 20060531, end: 20060717
  3. BLINDED UK-427,857 [Suspect]
     Route: 048
     Dates: start: 20060919, end: 20061101
  4. CYMBALTA [Suspect]
     Route: 048
     Dates: start: 20040606, end: 20061101
  5. VALTREX [Suspect]
     Route: 048
     Dates: start: 20020228, end: 20061101
  6. AVANDIA [Suspect]
     Route: 048
     Dates: start: 20020228, end: 20061101
  7. PREVACID [Suspect]
     Route: 048
     Dates: start: 20020228, end: 20061101
  8. ARANESP [Suspect]
     Dosage: TEXT:2500 UNITS
     Route: 048
     Dates: start: 20060531, end: 20061101
  9. FERROUS SULFATE [Concomitant]
     Route: 048
     Dates: start: 20060531, end: 20061101
  10. VICODIN [Concomitant]
     Dosage: TEXT:4 TABLETS OR 20/200MG
     Route: 048
     Dates: start: 20060927, end: 20061102

REACTIONS (1)
  - SUICIDE ATTEMPT [None]
